FAERS Safety Report 13555642 (Version 1)
Quarter: 2017Q2

REPORT INFORMATION
  Report Type: Spontaneous
  Country: US (occurrence: US)
  Receive Date: 20170517
  Receipt Date: 20170517
  Transmission Date: 20170830
  Serious: Yes (Hospitalization)
  Sender: FDA-Public Use
  Company Number: US-MYLANLABS-2017M1029757

PATIENT

DRUGS (3)
  1. NIVOLUMAB [Suspect]
     Active Substance: NIVOLUMAB
     Indication: METASTATIC MALIGNANT MELANOMA
     Dosage: COMPLETED 6 CYCLES, CURRENTLY RECEIVING MONOTHERAPY
     Route: 065
  2. LEVOTHYROXINE. [Suspect]
     Active Substance: LEVOTHYROXINE
     Indication: THYROID HORMONE REPLACEMENT THERAPY
     Route: 065
  3. IPILIMUMAB [Suspect]
     Active Substance: IPILIMUMAB
     Indication: METASTATIC MALIGNANT MELANOMA
     Dosage: COMPLETED 6 CYCLES, CURRENTLY RECEIVING MONOTHERAPY
     Route: 065

REACTIONS (3)
  - Adrenal insufficiency [Unknown]
  - Syncope [Unknown]
  - Hypophysitis [Unknown]
